FAERS Safety Report 21355733 (Version 1)
Quarter: 2022Q3

REPORT INFORMATION
  Report Type: Spontaneous
  Country: US (occurrence: US)
  Receive Date: 20220920
  Receipt Date: 20220920
  Transmission Date: 20221026
  Serious: No
  Sender: FDA-Public Use
  Company Number: US-THERAPEUTICSMD-2022TMD00123

PATIENT
  Age: 24 Year
  Sex: Female
  Weight: 61.224 kg

DRUGS (2)
  1. ANNOVERA [Suspect]
     Active Substance: ETHINYL ESTRADIOL\SEGESTERONE ACETATE
     Indication: Contraception
     Dosage: 1 RING CONTINUOUSLY
     Route: 067
     Dates: start: 20211217, end: 20220104
  2. ANNOVERA [Suspect]
     Active Substance: ETHINYL ESTRADIOL\SEGESTERONE ACETATE
     Dosage: 1 RING CONTINUOUSLY
     Route: 067
     Dates: start: 20220106

REACTIONS (6)
  - Cervix disorder [Unknown]
  - Off label use [Not Recovered/Not Resolved]
  - Device material issue [Not Recovered/Not Resolved]
  - Device colour issue [Not Recovered/Not Resolved]
  - Device defective [Not Recovered/Not Resolved]
  - Withdrawal bleed [Not Recovered/Not Resolved]

NARRATIVE: CASE EVENT DATE: 20211217
